FAERS Safety Report 18941896 (Version 1)
Quarter: 2021Q1

REPORT INFORMATION
  Report Type: Report from Study
  Country: US (occurrence: US)
  Receive Date: 20210225
  Receipt Date: 20210225
  Transmission Date: 20210420
  Serious: Yes (Other)
  Sender: FDA-Public Use
  Company Number: US-TEVA-2021-US-1882902

PATIENT
  Age: 68 Year
  Sex: Male

DRUGS (2)
  1. SULPHASALAZINE [Suspect]
     Active Substance: SULFASALAZINE
     Indication: ANNULAR ELASTOLYTIC GIANT CELL GRANULOMA
  2. SULPHASALAZINE [Suspect]
     Active Substance: SULFASALAZINE
     Indication: GRANULOMA ANNULARE
     Route: 065

REACTIONS (3)
  - Abdominal discomfort [Unknown]
  - Neutropenia [Unknown]
  - Off label use [Unknown]
